FAERS Safety Report 8344172-5 (Version None)
Quarter: 2012Q2

REPORT INFORMATION
  Report Type: 
  Country: None (occurrence: None)
  Receive Date: 20120508
  Receipt Date: 20120502
  Transmission Date: 20120825
  Serious: Yes (Other)
  Sender: FDA-Public Use
  Company Number: PHFR2012GB001699

PATIENT
  Sex: Female
  Weight: 104 kg

DRUGS (5)
  1. CLOZARIL [Suspect]
     Indication: SCHIZOPHRENIA
     Dosage: 125 MG, (50 MG MORNING AND 75 MG AT NIGHT)
     Route: 048
     Dates: start: 20120306
  2. ASPIRIN [Concomitant]
     Dosage: 75 MG, DAILY
     Dates: start: 20101025
  3. VALPROATE SODIUM [Concomitant]
     Dosage: 750 MG, UNK
     Dates: start: 20101025
  4. SIMVASTATIN [Concomitant]
     Dosage: 2 MG, DAILY
     Dates: start: 20101025
  5. CLOZARIL [Suspect]
     Dosage: 100 MG, DAILY
     Route: 048
     Dates: start: 20120313, end: 20120326

REACTIONS (12)
  - C-REACTIVE PROTEIN INCREASED [None]
  - OROPHARYNGEAL PAIN [None]
  - PLATELET COUNT DECREASED [None]
  - SOMNOLENCE [None]
  - LYMPHOCYTE COUNT DECREASED [None]
  - BALANCE DISORDER [None]
  - HYPOTENSION [None]
  - MALAISE [None]
  - HAEMOGLOBIN DECREASED [None]
  - BODY TEMPERATURE INCREASED [None]
  - HYPERHIDROSIS [None]
  - LYMPHADENOPATHY [None]
